FAERS Safety Report 10021521 (Version 1)
Quarter: 2014Q1

REPORT INFORMATION
  Report Type: Spontaneous
  Country: US (occurrence: None)
  Receive Date: 20140318
  Receipt Date: 20140318
  Transmission Date: 20141002
  Serious: Yes (Other)
  Sender: FDA-Public Use
  Company Number: None

PATIENT
  Age: 63 Year
  Sex: Female
  Weight: 58.06 kg

DRUGS (1)
  1. LOVASTATIN TABLETS USP 40 MG [Suspect]
     Indication: BLOOD LACTATE DEHYDROGENASE INCREASED
     Dosage: 1 PILL DAILY, ONCE DAILY, TAKEN BY MOUTH
     Route: 048
     Dates: start: 20140101, end: 20140312

REACTIONS (10)
  - Restless legs syndrome [None]
  - Muscle spasms [None]
  - Libido increased [None]
  - Agitation [None]
  - Middle insomnia [None]
  - Feeling hot [None]
  - Insomnia [None]
  - Pyrexia [None]
  - Chills [None]
  - Product substitution issue [None]
